FAERS Safety Report 12092999 (Version 1)
Quarter: 2016Q1

REPORT INFORMATION
  Report Type: Spontaneous
  Country: US (occurrence: US)
  Receive Date: 20160219
  Receipt Date: 20160219
  Transmission Date: 20160526
  Serious: No
  Sender: FDA-Public Use
  Company Number: US-PFIZER INC-2016087048

PATIENT
  Age: 78 Year
  Sex: Male

DRUGS (1)
  1. SUTENT [Suspect]
     Active Substance: SUNITINIB MALATE
     Indication: METASTATIC RENAL CELL CARCINOMA
     Dosage: 50 MG, CYCLIC, (4/2 SCHEDULE, 4 WEEKS ON AND 2 WEEKS OFF)

REACTIONS (10)
  - Oral pain [Recovered/Resolved]
  - Blood pressure increased [Recovered/Resolved]
  - Hand-foot-and-mouth disease [Recovered/Resolved]
  - Mucosal inflammation [Unknown]
  - Fatigue [Recovering/Resolving]
  - Gastrooesophageal reflux disease [Recovered/Resolved]
  - Wound dehiscence [Recovered/Resolved]
  - Quality of life decreased [Recovering/Resolving]
  - Dysgeusia [Recovered/Resolved]
  - Diarrhoea [Recovering/Resolving]
